FAERS Safety Report 16776230 (Version 1)
Quarter: 2019Q3

REPORT INFORMATION
  Report Type: Spontaneous
  Country: US (occurrence: US)
  Receive Date: 20190905
  Receipt Date: 20190905
  Transmission Date: 20191005
  Serious: No
  Sender: FDA-Public Use
  Company Number: US-ASTRAZENECA-2019SF13020

PATIENT
  Sex: Female
  Weight: 84.4 kg

DRUGS (10)
  1. LYRICA [Suspect]
     Active Substance: PREGABALIN
     Indication: FIBROMYALGIA
     Route: 048
  2. PROPRANOLOL ER [Concomitant]
     Active Substance: PROPRANOLOL HYDROCHLORIDE
     Indication: CARDIAC DISORDER
  3. LEVOTHRYOXINE [Concomitant]
     Active Substance: LEVOTHYROXINE
     Indication: THYROID DISORDER
  4. LYRICA [Suspect]
     Active Substance: PREGABALIN
     Indication: ARTHRITIS
     Route: 048
  5. ALPRAZOLAM. [Concomitant]
     Active Substance: ALPRAZOLAM
     Indication: ANXIETY
  6. PROPRANOLOL [Suspect]
     Active Substance: PROPRANOLOL HYDROCHLORIDE
     Route: 048
  7. ALBUTEROL. [Concomitant]
     Active Substance: ALBUTEROL
  8. SYMBICORT [Suspect]
     Active Substance: BUDESONIDE\FORMOTEROL FUMARATE DIHYDRATE
     Indication: ASTHMA
     Dosage: EVERY MORNING AND EVERY NIGHT
     Route: 055
  9. DULOXETINE DR [Concomitant]
     Active Substance: DULOXETINE
  10. MECLIZINE [Concomitant]
     Active Substance: MECLIZINE HYDROCHLORIDE
     Indication: VERTIGO

REACTIONS (8)
  - Product prescribing error [Unknown]
  - Hypertension [Unknown]
  - Hypoacusis [Unknown]
  - Peripheral swelling [Unknown]
  - Feeling abnormal [Unknown]
  - Arthritis [Unknown]
  - Migraine [Unknown]
  - Product dose omission [Unknown]
